FAERS Safety Report 7504165-4 (Version None)
Quarter: 2011Q2

REPORT INFORMATION
  Report Type: 
  Country: None (occurrence: None)
  Receive Date: 20110525
  Receipt Date: 20110512
  Transmission Date: 20111010
  Serious: Yes (Other)
  Sender: FDA-Public Use
  Company Number: US-ELI_LILLY_AND_COMPANY-US201002007047

PATIENT
  Sex: Female

DRUGS (7)
  1. FORTEO [Suspect]
     Dosage: 20 UG, QD
     Route: 058
  2. ATENOLOL [Concomitant]
     Indication: HYPERTENSION
  3. PREVACID [Concomitant]
     Dosage: UNK, AS NEEDED
  4. LOVASTATIN [Concomitant]
     Indication: BLOOD CHOLESTEROL
  5. FORTEO [Suspect]
     Dosage: 20 UG, DAILY (1/D)
     Route: 058
  6. FORTEO [Suspect]
     Indication: OSTEOPOROSIS
     Dosage: 20 UG, UNKNOWN
     Route: 058
     Dates: start: 20090622
  7. FORTEO [Suspect]
     Dosage: 20 UG, DAILY (1/D)
     Route: 058
     Dates: end: 20110214

REACTIONS (2)
  - INJECTION SITE PAIN [None]
  - BREAST CANCER STAGE I [None]
